FAERS Safety Report 14020132 (Version 1)
Quarter: 2017Q3

REPORT INFORMATION
  Report Type: Report from Study
  Country: JP (occurrence: JP)
  Receive Date: 20170928
  Receipt Date: 20170928
  Transmission Date: 20171128
  Serious: Yes (Death, Other)
  Sender: FDA-Public Use
  Company Number: JP-BAUSCH-BL-2017-028102

PATIENT
  Age: 73 Year
  Sex: Male

DRUGS (6)
  1. TRITEREN [Concomitant]
     Indication: ASCITES
     Route: 048
     Dates: start: 201603
  2. SAMSCA [Concomitant]
     Active Substance: TOLVAPTAN
     Indication: ASCITES
     Route: 048
     Dates: start: 20161202
  3. RIFXIMA TABLETS 200 MG [Suspect]
     Active Substance: RIFAXIMIN
     Indication: HYPERAMMONAEMIA
     Route: 048
     Dates: start: 20170518
  4. LIVACT [Concomitant]
     Active Substance: AMINO ACIDS
     Indication: HYPERAMMONAEMIA
     Route: 048
     Dates: start: 201603
  5. TAKEPRON [Concomitant]
     Active Substance: LANSOPRAZOLE
     Indication: GASTRITIS PROPHYLAXIS
     Route: 048
     Dates: start: 201603
  6. FUROSEMIDE. [Concomitant]
     Active Substance: FUROSEMIDE
     Indication: ASCITES
     Route: 048
     Dates: start: 201603

REACTIONS (8)
  - Hepatic encephalopathy [Not Recovered/Not Resolved]
  - Death [Fatal]
  - Dehydration [Unknown]
  - Intentional underdose [Not Recovered/Not Resolved]
  - Disease progression [Not Recovered/Not Resolved]
  - Hepatic failure [Unknown]
  - Decreased appetite [Unknown]
  - Hypokalaemia [Unknown]

NARRATIVE: CASE EVENT DATE: 20170525
